FAERS Safety Report 6864300-8 (Version None)
Quarter: 2010Q3

REPORT INFORMATION
  Report Type: 
  Country: None (occurrence: None)
  Receive Date: 20100721
  Receipt Date: 20080628
  Transmission Date: 20110219
  Serious: No
  Sender: FDA-Public Use
  Company Number: US-PFIZER INC-2008023018

PATIENT
  Age: 47 Year
  Sex: Male
  Weight: 97.52 kg

DRUGS (3)
  1. CHANTIX [Suspect]
     Indication: SMOKING CESSATION THERAPY
     Route: 048
  2. PANADEINE CO [Interacting]
  3. TYLENOL [Interacting]

REACTIONS (1)
  - DRUG INTERACTION [None]
